FAERS Safety Report 8808599 (Version 1)
Quarter: 2012Q4

REPORT INFORMATION
  Report Type: Spontaneous
  Country: US (occurrence: None)
  Receive Date: 20120920
  Receipt Date: 20120920
  Transmission Date: 20130627
  Serious: Yes (Other)
  Sender: FDA-Public Use
  Company Number: None

PATIENT
  Age: 65 Year
  Sex: Male
  Weight: 83 kg

DRUGS (1)
  1. PRADAXA [Suspect]
     Indication: ATRIAL FLUTTER
     Route: 048
     Dates: start: 20120816, end: 20120901

REACTIONS (2)
  - Dizziness [None]
  - Nausea [None]
